FAERS Safety Report 12378937 (Version 1)
Quarter: 2016Q2

REPORT INFORMATION
  Report Type: Spontaneous
  Country: US (occurrence: US)
  Receive Date: 20160517
  Receipt Date: 20160517
  Transmission Date: 20160815
  Serious: No
  Sender: FDA-Public Use
  Company Number: US-TEVA-659655USA

PATIENT
  Age: 55 Year
  Sex: Male

DRUGS (2)
  1. NUVIGIL [Suspect]
     Active Substance: ARMODAFINIL
  2. NUVIGIL [Suspect]
     Active Substance: ARMODAFINIL

REACTIONS (2)
  - Drug ineffective [Unknown]
  - Hypersomnia [Unknown]
